FAERS Safety Report 5695774-6 (Version None)
Quarter: 2008Q2

REPORT INFORMATION
  Report Type: 
  Country: None (occurrence: None)
  Receive Date: 20080407
  Receipt Date: 20080326
  Transmission Date: 20081010
  Serious: Yes (Death)
  Sender: FDA-Public Use
  Company Number: -BAXTER-20850

PATIENT
  Age: 17 Year
  Sex: Male
  Weight: 68 kg

DRUGS (14)
  1. GAMMAGARD [Suspect]
     Indication: VASCULITIS
     Dosage: 5 TIMES
     Route: 042
     Dates: start: 19940119, end: 19940124
  2. GAMMAGARD [Suspect]
     Indication: SELECTIVE IGG SUBCLASS DEFICIENCY
     Dosage: 5 TIMES
     Route: 042
     Dates: start: 19940119, end: 19940124
  3. GAMMAGARD [Suspect]
     Dosage: 5 TIMES
     Route: 042
     Dates: start: 19940119, end: 19940124
  4. GAMMAGARD [Suspect]
     Dosage: 5 TIMES
     Route: 042
     Dates: start: 19940119, end: 19940124
  5. GAMMAGARD [Suspect]
     Dosage: 5 TIMES
     Route: 042
     Dates: start: 19940119, end: 19940124
  6. GAMMAGARD [Suspect]
     Dosage: 5 TIMES
     Route: 042
     Dates: start: 19940119, end: 19940124
  7. GAMMAGARD [Suspect]
     Dosage: DOSE UNIT:UNKNOWN
     Route: 042
     Dates: start: 19940201
  8. GAMMAGARD [Suspect]
     Dosage: DOSE UNIT:UNKNOWN
     Route: 042
     Dates: start: 19940201
  9. SOLU-MEDROL [Concomitant]
     Dates: end: 19930815
  10. MEDROL [Concomitant]
     Dates: end: 19931112
  11. MAALOX /NET/ [Concomitant]
  12. POTASSIUM CHLORIDE [Concomitant]
  13. STEROGYL [Concomitant]
  14. OROCAL [Concomitant]

REACTIONS (2)
  - HEPATIC NEOPLASM MALIGNANT [None]
  - HEPATITIS C [None]
